FAERS Safety Report 6811165-6 (Version None)
Quarter: 2010Q2

REPORT INFORMATION
  Report Type: 
  Country: None (occurrence: None)
  Receive Date: 20100630
  Receipt Date: 20090721
  Transmission Date: 20101027
  Serious: No
  Sender: FDA-Public Use
  Company Number: US-AMGEN-KDL357114

PATIENT
  Sex: Female
  Weight: 55.8 kg

DRUGS (4)
  1. PROCRIT [Suspect]
     Indication: RENAL FAILURE CHRONIC
     Route: 058
     Dates: start: 20070101
  2. IRON [Concomitant]
     Route: 048
  3. LIPITOR [Concomitant]
  4. UNSPECIFIED MEDICATION [Concomitant]

REACTIONS (4)
  - INJECTION SITE PAIN [None]
  - MUSCULOSKELETAL PAIN [None]
  - PAIN [None]
  - PAIN IN EXTREMITY [None]
